FAERS Safety Report 17841847 (Version 3)
Quarter: 2021Q3

REPORT INFORMATION
  Report Type: Spontaneous
  Country: CA (occurrence: CA)
  Receive Date: 20200529
  Receipt Date: 20210908
  Transmission Date: 20211014
  Serious: Yes (Other)
  Sender: FDA-Public Use
  Company Number: CA-ROCHE-2605136

PATIENT
  Sex: Female

DRUGS (21)
  1. DICLOFENAC POTASSIUM. [Suspect]
     Active Substance: DICLOFENAC POTASSIUM
     Indication: PRODUCT USED FOR UNKNOWN INDICATION
     Route: 065
  2. DICLOFENAC SODIUM. [Suspect]
     Active Substance: DICLOFENAC SODIUM
     Indication: PRODUCT USED FOR UNKNOWN INDICATION
     Route: 065
  3. ACTEMRA [Suspect]
     Active Substance: TOCILIZUMAB
     Indication: RHEUMATOID ARTHRITIS
     Route: 042
  4. RITUXIMAB. [Suspect]
     Active Substance: RITUXIMAB
     Route: 041
  5. DICLOFENAC [Suspect]
     Active Substance: DICLOFENAC
     Indication: RHEUMATOID ARTHRITIS
     Route: 065
  6. PREGABALIN. [Suspect]
     Active Substance: PREGABALIN
     Indication: PRODUCT USED FOR UNKNOWN INDICATION
     Route: 065
  7. XELJANZ [Suspect]
     Active Substance: TOFACITINIB CITRATE
     Indication: PRODUCT USED FOR UNKNOWN INDICATION
     Route: 065
  8. GOLD [Suspect]
     Active Substance: GOLD
     Indication: RHEUMATOID ARTHRITIS
     Route: 065
  9. ORENCIA [Suspect]
     Active Substance: ABATACEPT
     Indication: RHEUMATOID ARTHRITIS
     Route: 058
  10. APO?DICLO [Suspect]
     Active Substance: DICLOFENAC SODIUM
     Route: 061
  11. METHOTREXATE. [Suspect]
     Active Substance: METHOTREXATE
     Indication: RHEUMATOID ARTHRITIS
     Route: 065
  12. RITUXIMAB. [Suspect]
     Active Substance: RITUXIMAB
     Indication: RHEUMATOID ARTHRITIS
     Route: 040
  13. LYRICA [Suspect]
     Active Substance: PREGABALIN
     Indication: RHEUMATOID ARTHRITIS
     Route: 048
  14. APO?DICLO [Suspect]
     Active Substance: DICLOFENAC SODIUM
     Indication: PRODUCT USED FOR UNKNOWN INDICATION
     Route: 065
  15. GOLD (198 AU) COLLOIDAL [Suspect]
     Active Substance: GOLD AU-198
     Indication: RHEUMATOID ARTHRITIS
     Route: 065
  16. GOLD;IRON;POTASSIUM PHOSPHATE DIBASIC;SILICON DIOXIDE [Suspect]
     Active Substance: ELECTROLYTES NOS\MINERALS
     Indication: RHEUMATOID ARTHRITIS
     Route: 065
  17. SILICON DIOXIDE [Suspect]
     Active Substance: SILICON DIOXIDE
     Indication: RHEUMATOID ARTHRITIS
     Route: 065
  18. HUMIRA [Suspect]
     Active Substance: ADALIMUMAB
     Indication: RHEUMATOID ARTHRITIS
     Route: 058
  19. APO?DICLO [Suspect]
     Active Substance: DICLOFENAC SODIUM
     Route: 065
  20. IRON [Suspect]
     Active Substance: IRON
     Indication: RHEUMATOID ARTHRITIS
     Route: 065
  21. POTASSIUM PHOSPHATE DIBASIC [Suspect]
     Active Substance: POTASSIUM PHOSPHATE, DIBASIC
     Indication: RHEUMATOID ARTHRITIS
     Route: 065

REACTIONS (16)
  - Drug eruption [Not Recovered/Not Resolved]
  - Joint stiffness [Not Recovered/Not Resolved]
  - Rheumatoid arthritis [Not Recovered/Not Resolved]
  - Off label use [Unknown]
  - Pain [Not Recovered/Not Resolved]
  - Product use issue [Unknown]
  - Herpes zoster [Not Recovered/Not Resolved]
  - Infection [Not Recovered/Not Resolved]
  - Synovitis [Not Recovered/Not Resolved]
  - Disease progression [Not Recovered/Not Resolved]
  - Musculoskeletal stiffness [Not Recovered/Not Resolved]
  - Pain in extremity [Not Recovered/Not Resolved]
  - Rash [Not Recovered/Not Resolved]
  - Skin lesion [Not Recovered/Not Resolved]
  - Sleep disorder [Not Recovered/Not Resolved]
  - Treatment failure [Unknown]
